FAERS Safety Report 14807799 (Version 1)
Quarter: 2018Q2

REPORT INFORMATION
  Report Type: Spontaneous
  Country: FR (occurrence: FR)
  Receive Date: 20180425
  Receipt Date: 20180425
  Transmission Date: 20180711
  Serious: Yes (Other)
  Sender: FDA-Public Use
  Company Number: FR-ELI_LILLY_AND_COMPANY-FR201804009285

PATIENT
  Age: 42 Year
  Sex: Female

DRUGS (4)
  1. TRULICITY [Suspect]
     Active Substance: DULAGLUTIDE
     Indication: PRODUCT USED FOR UNKNOWN INDICATION
     Dosage: 1.5 MG, UNKNOWN
     Route: 065
  2. ABILIFY [Concomitant]
     Active Substance: ARIPIPRAZOLE
     Indication: PSYCHIATRIC SYMPTOM
     Dosage: UNK, UNKNOWN
     Route: 065
  3. TRAMADOL. [Concomitant]
     Active Substance: TRAMADOL
     Dosage: UNK, UNKNOWN
     Route: 065
  4. XOLAIR [Concomitant]
     Active Substance: OMALIZUMAB
     Indication: PNEUMONIA
     Dosage: UNK, UNKNOWN
     Route: 065

REACTIONS (2)
  - Balance disorder [Not Recovered/Not Resolved]
  - Neck pain [Unknown]
